FAERS Safety Report 21629290 (Version 3)
Quarter: 2022Q4

REPORT INFORMATION
  Report Type: Spontaneous
  Country: LT (occurrence: None)
  Receive Date: 20221122
  Receipt Date: 20221220
  Transmission Date: 20230113
  Serious: Yes (Other)
  Sender: FDA-Public Use
  Company Number: 2022A381712

PATIENT

DRUGS (5)
  1. DURVALUMAB [Suspect]
     Active Substance: DURVALUMAB
     Indication: Drug interaction
     Route: 041
     Dates: start: 20221008, end: 20221114
  2. DURVALUMAB [Suspect]
     Active Substance: DURVALUMAB
     Indication: Drug interaction
     Route: 041
  3. CARBOPLATIN [Suspect]
     Active Substance: CARBOPLATIN
     Indication: Drug interaction
     Route: 065
  4. GEMCITABINE HYDROCHLORIDE [Suspect]
     Active Substance: GEMCITABINE HYDROCHLORIDE
     Indication: Drug interaction
     Route: 065
  5. CISPLATIN [Suspect]
     Active Substance: CISPLATIN
     Route: 065

REACTIONS (3)
  - Haematotoxicity [Recovered/Resolved]
  - Neutropenia [Recovered/Resolved]
  - Thrombocytopenia [Recovered/Resolved]

NARRATIVE: CASE EVENT DATE: 20221114
